FAERS Safety Report 15483952 (Version 1)
Quarter: 2018Q4

REPORT INFORMATION
  Report Type: Other
  Country: US (occurrence: TR)
  Receive Date: 20181010
  Receipt Date: 20181010
  Transmission Date: 20190205
  Serious: Yes (Hospitalization)
  Sender: FDA-Public Use
  Company Number: TR-BRECKENRIDGE PHARMACEUTICAL, INC.-2055908

PATIENT
  Age: 55 Year
  Sex: Female

DRUGS (1)
  1. LEVETIRACETAM. [Suspect]
     Active Substance: LEVETIRACETAM

REACTIONS (1)
  - Obsessive-compulsive disorder [Unknown]
